FAERS Safety Report 8034913 (Version 4)
Quarter: 2013Q3

REPORT INFORMATION
  Report Type: Report from Study
  Country: US (occurrence: US)
  Receive Date: 20110714
  Receipt Date: 20130731
  Transmission Date: 20140515
  Serious: Yes (Other)
  Sender: FDA-Public Use
  Company Number: US-PFIZER INC-2011157829

PATIENT
  Age: 77 Year
  Sex: Female
  Weight: 79.37 kg

DRUGS (4)
  1. CELEBREX [Suspect]
     Indication: ARTHRITIS
     Dosage: 200 MG, 2X/DAY
     Route: 048
     Dates: start: 201106, end: 201106
  2. CELEBREX [Suspect]
     Indication: PAIN
  3. SULFUR [Suspect]
     Dosage: UNK
  4. NEXIUM [Concomitant]
     Indication: GASTROOESOPHAGEAL REFLUX DISEASE
     Dosage: UNK

REACTIONS (13)
  - Overdose [Unknown]
  - Rash generalised [Recovered/Resolved]
  - Rash macular [Unknown]
  - Dry skin [Unknown]
  - Skin exfoliation [Unknown]
  - Skin discolouration [Unknown]
  - Skin disorder [Unknown]
  - Drug hypersensitivity [Unknown]
  - Kidney infection [Not Recovered/Not Resolved]
  - Hepatic cancer [Unknown]
  - Dizziness [Not Recovered/Not Resolved]
  - Blood pressure fluctuation [Unknown]
  - Malaise [Unknown]
